FAERS Safety Report 13498658 (Version 1)
Quarter: 2017Q2

REPORT INFORMATION
  Report Type: Spontaneous
  Country: US (occurrence: US)
  Receive Date: 20170428
  Receipt Date: 20170428
  Transmission Date: 20170830
  Serious: Yes (Hospitalization)
  Sender: FDA-Public Use
  Company Number: None

PATIENT
  Age: 54 Year
  Sex: Female

DRUGS (16)
  1. PRILOSEC [Concomitant]
     Active Substance: OMEPRAZOLE MAGNESIUM
  2. VITAMIN D3 [Concomitant]
     Active Substance: CHOLECALCIFEROL
  3. OMEPRAZOLE. [Concomitant]
     Active Substance: OMEPRAZOLE
  4. FASLODEX [Concomitant]
     Active Substance: FULVESTRANT
  5. CEPHALEXIN. [Concomitant]
     Active Substance: CEPHALEXIN
  6. ATORVASTATIN [Concomitant]
     Active Substance: ATORVASTATIN
  7. PREDNISONE. [Concomitant]
     Active Substance: PREDNISONE
  8. IBRANCE [Suspect]
     Active Substance: PALBOCICLIB
     Indication: BREAST CANCER
     Dosage: 125 MG QD1-21 OF 28DS BY MOUTH
     Route: 048
     Dates: start: 201701
  9. HYDROCODONE [Concomitant]
     Active Substance: HYDROCODONE
  10. VENLAFAXINE [Concomitant]
     Active Substance: VENLAFAXINE HYDROCHLORIDE
  11. PROVENTIL [Concomitant]
     Active Substance: ALBUTEROL
  12. QVAR [Concomitant]
     Active Substance: BECLOMETHASONE DIPROPIONATE
  13. TEMAZEPAM. [Concomitant]
     Active Substance: TEMAZEPAM
  14. NYSTATIN. [Concomitant]
     Active Substance: NYSTATIN
  15. LYRICA [Concomitant]
     Active Substance: PREGABALIN
  16. VALACYCLOVIR [Concomitant]
     Active Substance: VALACYCLOVIR HYDROCHLORIDE

REACTIONS (4)
  - Pyrexia [None]
  - Headache [None]
  - White blood cell count decreased [None]
  - Central nervous system lesion [None]

NARRATIVE: CASE EVENT DATE: 20170414
